FAERS Safety Report 10703474 (Version 1)
Quarter: 2015Q1

REPORT INFORMATION
  Report Type: Spontaneous
  Country: GB (occurrence: GB)
  Receive Date: 20150112
  Receipt Date: 20150112
  Transmission Date: 20150721
  Serious: Yes (Other)
  Sender: FDA-Public Use
  Company Number: GB-AMGEN-GBRSP2015001642

PATIENT
  Age: 65 Year
  Sex: Male

DRUGS (1)
  1. ARANESP [Suspect]
     Active Substance: DARBEPOETIN ALFA
     Indication: PRODUCT USED FOR UNKNOWN INDICATION
     Dosage: 80 MCG/0.4 ML, UNK
     Route: 065

REACTIONS (5)
  - Lung disorder [Unknown]
  - Malaise [Unknown]
  - Haemorrhage [Unknown]
  - Gait disturbance [Unknown]
  - Renal disorder [Unknown]
